FAERS Safety Report 6574257-5 (Version None)
Quarter: 2010Q1

REPORT INFORMATION
  Report Type: 
  Country: None (occurrence: None)
  Receive Date: 20100208
  Receipt Date: 20100208
  Transmission Date: 20100710
  Serious: Yes (Other)
  Sender: FDA-Public Use
  Company Number: US-ABBOTT-10P-163-0622624-00

PATIENT
  Sex: Female

DRUGS (3)
  1. DEPAKOTE [Suspect]
     Indication: MANIA
     Dosage: PARTNER USE
     Route: 050
     Dates: start: 20080301
  2. DEPAKOTE [Suspect]
     Indication: BIPOLAR DISORDER
  3. DEPAKOTE [Suspect]
     Indication: DRUG EXPOSURE DURING PREGNANCY

REACTIONS (2)
  - ABORTION SPONTANEOUS [None]
  - DRUG EXPOSURE DURING PREGNANCY [None]
